FAERS Safety Report 7050966-9 (Version None)
Quarter: 2010Q4

REPORT INFORMATION
  Report Type: 
  Country: None (occurrence: None)
  Receive Date: 20101019
  Receipt Date: 20101012
  Transmission Date: 20110411
  Serious: Yes (Hospitalization)
  Sender: FDA-Public Use
  Company Number: DE-US-EMD SERONO, INC.-7021440

PATIENT
  Sex: Female

DRUGS (6)
  1. REBIF [Suspect]
     Indication: RELAPSING-REMITTING MULTIPLE SCLEROSIS
     Route: 058
     Dates: start: 20030101, end: 20080401
  2. AVONEX [Suspect]
     Indication: RELAPSING-REMITTING MULTIPLE SCLEROSIS
     Route: 030
     Dates: start: 20081101, end: 20100201
  3. NATALIZUMAB [Concomitant]
     Indication: RELAPSING-REMITTING MULTIPLE SCLEROSIS
     Route: 042
     Dates: start: 20080501, end: 20081101
  4. LEVOTHYROXINE SODIUM [Concomitant]
     Route: 048
  5. SIRALUD 2 [Concomitant]
  6. GLATIRAMER ACETATE [Concomitant]
     Route: 058
     Dates: start: 20100301

REACTIONS (2)
  - MUSCLE NECROSIS [None]
  - MYOPATHY TOXIC [None]
